FAERS Safety Report 6550033-4 (Version None)
Quarter: 2010Q1

REPORT INFORMATION
  Report Type: 
  Country: None (occurrence: None)
  Receive Date: 20100119
  Receipt Date: 20100111
  Transmission Date: 20100710
  Serious: Yes (Hospitalization, Other)
  Sender: FDA-Public Use
  Company Number: 471419

PATIENT
  Age: 17 Year
  Sex: Male
  Weight: 56 kg

DRUGS (6)
  1. METHOTREXATE [Suspect]
     Indication: DRUG USE FOR UNKNOWN INDICATION
     Dosage: 20 G, INTRAVENOUS
     Route: 042
  2. DEXAMETHASONE [Concomitant]
  3. LEUCOVORIN CALCIUM [Concomitant]
  4. LORAZEPAM [Concomitant]
  5. MORPHINE [Concomitant]
  6. ONDANSETRON [Concomitant]

REACTIONS (4)
  - FLUSHING [None]
  - INFUSION RELATED REACTION [None]
  - THROAT TIGHTNESS [None]
  - URTICARIA [None]
